FAERS Safety Report 4724986-0 (Version None)
Quarter: 2005Q3

REPORT INFORMATION
  Report Type: 
  Country: None (occurrence: None)
  Receive Date: 20050722
  Receipt Date: 20050707
  Transmission Date: 20060218
  Serious: Yes (Hospitalization)
  Sender: FDA-Public Use
  Company Number: ES-2005-013666

PATIENT
  Sex: Male

DRUGS (3)
  1. BETASERON [Suspect]
     Indication: MULTIPLE SCLEROSIS
     Dates: start: 20040101
  2. SEROXAT ^CIBA-GEIGY^ (PAROXETINE HYDROCHLORIDE) [Concomitant]
  3. AMANTADINE HCL [Concomitant]

REACTIONS (1)
  - PULMONARY EMBOLISM [None]
